FAERS Safety Report 16925102 (Version 1)
Quarter: 2019Q4

REPORT INFORMATION
  Report Type: Spontaneous
  Country: US (occurrence: US)
  Receive Date: 20191016
  Receipt Date: 20191016
  Transmission Date: 20200122
  Serious: Yes (Hospitalization, Other)
  Sender: FDA-Public Use
  Company Number: US-APOTEX-2019AP023581

PATIENT
  Age: 36 Year
  Sex: Female

DRUGS (2)
  1. MODAFINIL. [Suspect]
     Active Substance: MODAFINIL
     Indication: SOMNOLENCE
     Dosage: UNK AS NEEDED
     Route: 065
  2. ALBUTEROL                          /00139501/ [Concomitant]
     Active Substance: ALBUTEROL
     Indication: ASTHMA
     Dosage: UNK, AS NEEDED
     Route: 055

REACTIONS (3)
  - Respiratory alkalosis [Recovered/Resolved]
  - Hyperventilation [Recovered/Resolved]
  - Lactic acidosis [Unknown]
